FAERS Safety Report 5482270-4 (Version None)
Quarter: 2007Q4

REPORT INFORMATION
  Report Type: 
  Country: None (occurrence: None)
  Receive Date: 20071011
  Receipt Date: 20071002
  Transmission Date: 20080405
  Serious: Yes (Other)
  Sender: FDA-Public Use
  Company Number: GB-AMGEN-US246809

PATIENT
  Sex: Female

DRUGS (7)
  1. ENBREL [Suspect]
     Indication: DRUG USE FOR UNKNOWN INDICATION
     Dates: start: 20060401, end: 20070801
  2. FOLIC ACID [Concomitant]
     Dosage: UNKNOWN
  3. CALCICHEW-D3 FORTE [Concomitant]
     Dosage: UNKNOWN
  4. ATENOLOL [Concomitant]
     Dosage: UNKNOWN
  5. OMEPRAZOLE [Concomitant]
     Dosage: UNKNOWN
  6. METHOTREXATE [Concomitant]
     Dosage: UNKNOWN
  7. IRBESARTAN [Concomitant]
     Dosage: UNKNOWN

REACTIONS (1)
  - NEUROPATHY PERIPHERAL [None]
